FAERS Safety Report 8803914 (Version 1)
Quarter: 2012Q4

REPORT INFORMATION
  Report Type: 
  Country: MX (occurrence: MX)
  Receive Date: 20120924
  Receipt Date: 20120924
  Transmission Date: 20130627
  Serious: Yes (Other)
  Sender: FDA-Public Use
  Company Number: PHHY2012MX082733

PATIENT
  Age: 13 Year
  Sex: Male
  Weight: 74 kg

DRUGS (1)
  1. RITALIN [Suspect]
     Indication: ATTENTION DEFICIT/HYPERACTIVITY DISORDER

REACTIONS (8)
  - Blood cholesterol decreased [Unknown]
  - Blood alkaline phosphatase increased [Unknown]
  - Red cell distribution width increased [Unknown]
  - Lymphocyte percentage increased [Unknown]
  - Monocyte percentage increased [Unknown]
  - Eosinophil count increased [Unknown]
  - Platelet distribution width increased [Unknown]
  - Blood cholesterol increased [None]
